FAERS Safety Report 4534448-1 (Version None)
Quarter: 2004Q4

REPORT INFORMATION
  Report Type: 
  Country: None (occurrence: None)
  Receive Date: 20041214
  Receipt Date: 20041028
  Transmission Date: 20050328
  Serious: No
  Sender: FDA-Public Use
  Company Number: 2004242307US

PATIENT
  Age: 71 Year
  Sex: Female
  Weight: 70.3 kg

DRUGS (8)
  1. BEXTRA [Suspect]
     Indication: ARTHRITIS
     Dosage: 10 MG ; 20 MG : QD, ORAL
     Route: 048
     Dates: start: 20040101, end: 20040101
  2. BEXTRA [Suspect]
     Indication: ARTHRITIS
     Dosage: 10 MG ; 20 MG : QD, ORAL
     Route: 048
     Dates: start: 20040101, end: 20041028
  3. HYDROCHLOROTHIAZIDE [Concomitant]
  4. ZETIA [Concomitant]
  5. LESCOL [Concomitant]
  6. PREVACID [Concomitant]
  7. MULTIVITAMIN [Concomitant]
  8. CALCIUM GLUCONATE [Concomitant]

REACTIONS (3)
  - DRUG INEFFECTIVE [None]
  - HEADACHE [None]
  - OESOPHAGEAL PAIN [None]
